FAERS Safety Report 19083843 (Version 1)
Quarter: 2021Q2

REPORT INFORMATION
  Report Type: Spontaneous
  Country: FR (occurrence: FR)
  Receive Date: 20210401
  Receipt Date: 20210401
  Transmission Date: 20210717
  Serious: Yes (Other)
  Sender: FDA-Public Use
  Company Number: FR-TEVA-2021-FR-1895922

PATIENT
  Age: 20 Year
  Sex: Female
  Weight: 56 kg

DRUGS (11)
  1. TRIMEBUTINE [Concomitant]
     Active Substance: TRIMEBUTINE
     Indication: ABDOMINAL PAIN
     Dosage: 200MILLIGRAM
     Route: 042
     Dates: start: 20180519, end: 20180528
  2. SPASFON LYOC 80 MG, LYOPHILISAT ORAL [Concomitant]
     Active Substance: PHLOROGLUCINOL
     Indication: ABDOMINAL PAIN
     Dosage: 3DOSAGEFORM
     Route: 048
     Dates: start: 20180517, end: 20180522
  3. METRONIDAZOLE. [Concomitant]
     Active Substance: METRONIDAZOLE
     Indication: CAMPYLOBACTER COLITIS
     Dosage: 1500MILLIGRAM
     Route: 048
     Dates: start: 20180517, end: 20180518
  4. CEFTRIAXONE BASE [Suspect]
     Active Substance: CEFTRIAXONE
     Indication: CAMPYLOBACTER COLITIS
     Dosage: 1GRAM
     Route: 042
     Dates: start: 20180517, end: 20180517
  5. XENETIX 350 (350 MG D^IODE/ML), SOLUTION INJECTABLE [Concomitant]
     Active Substance: IOBITRIDOL
     Indication: SCAN WITH CONTRAST
     Dosage: 110ML
     Route: 042
     Dates: start: 20180516, end: 20180516
  6. LAMICTAL 200 MG, COMPRIME [Concomitant]
     Indication: EPILEPSY
     Dosage: 1DOSAGEFORM
     Route: 048
  7. VANCOMYCINE [Concomitant]
     Active Substance: VANCOMYCIN
     Indication: CAMPYLOBACTER COLITIS
     Dosage: 500MILLIGRAM
     Route: 048
     Dates: start: 20180518, end: 20180528
  8. PARACETAMOL [Concomitant]
     Active Substance: ACETAMINOPHEN
     Indication: ABDOMINAL PAIN
     Dosage: 1GRAM
     Route: 048
     Dates: start: 20180517, end: 20180528
  9. ENOXAPARINE SODIQUE ((MAMMIFERE/PORC/MUQUEUSE INTESTINALE)) [Concomitant]
     Active Substance: ENOXAPARIN SODIUM
     Indication: CARDIOVASCULAR EVENT PROPHYLAXIS
     Dosage: 4000IU
     Route: 058
     Dates: start: 20180517, end: 20180528
  10. OXYCODONE [Concomitant]
     Active Substance: OXYCODONE
     Indication: PAIN
     Dosage: 5MILLIGRAM
     Route: 048
     Dates: start: 20180517, end: 20180525
  11. CIPROFLOXACINE [Suspect]
     Active Substance: CIPROFLOXACIN
     Indication: CAMPYLOBACTER COLITIS
     Dosage: 1000MILLIGRAM
     Route: 048
     Dates: start: 20180517, end: 20180523

REACTIONS (4)
  - Rash maculo-papular [Recovered/Resolved]
  - Cell death [Recovered/Resolved]
  - Gamma-glutamyltransferase increased [Recovered/Resolved]
  - Toxic skin eruption [Recovered/Resolved]

NARRATIVE: CASE EVENT DATE: 20180519
